FAERS Safety Report 14313971 (Version 2)
Quarter: 2017Q4

REPORT INFORMATION
  Report Type: Report from Study
  Country: US (occurrence: US)
  Receive Date: 20171221
  Receipt Date: 20171222
  Transmission Date: 20180321
  Serious: Yes (Other)
  Sender: FDA-Public Use
  Company Number: US-JNJFOC-20170825485

PATIENT
  Age: 82 Year
  Sex: Female

DRUGS (13)
  1. GLUCOSAMINE [Concomitant]
     Active Substance: GLUCOSAMINE
  2. HYDROCHLOROTHIAZIDE. [Concomitant]
     Active Substance: HYDROCHLOROTHIAZIDE
  3. IMBRUVICA [Suspect]
     Active Substance: IBRUTINIB
     Indication: CHRONIC LYMPHOCYTIC LEUKAEMIA
     Route: 048
     Dates: start: 20170812
  4. TEMAZEPAM. [Concomitant]
     Active Substance: TEMAZEPAM
  5. IMBRUVICA [Suspect]
     Active Substance: IBRUTINIB
     Indication: CHRONIC LYMPHOCYTIC LEUKAEMIA
     Route: 048
     Dates: start: 20170812
  6. SIMVASTATIN. [Concomitant]
     Active Substance: SIMVASTATIN
  7. AZITHROMYCIN ANHYDROUS. [Concomitant]
     Active Substance: AZITHROMYCIN ANHYDROUS
  8. GLUCOSE [Concomitant]
     Active Substance: DEXTROSE
  9. SIMETHICONE (DIMETHICONE) [Concomitant]
     Active Substance: DIMETHICONE
  10. CENTRUM SILVER [Concomitant]
     Active Substance: MINERALS\VITAMINS
  11. ATIVAN [Concomitant]
     Active Substance: LORAZEPAM
  12. PRILOSEC [Concomitant]
     Active Substance: OMEPRAZOLE MAGNESIUM
  13. ENALAPRIL [Concomitant]
     Active Substance: ENALAPRIL

REACTIONS (18)
  - Rectal abscess [Unknown]
  - Anaemia [Unknown]
  - Increased tendency to bruise [Unknown]
  - Rectal haemorrhage [Unknown]
  - Constipation [Unknown]
  - Stress [Not Recovered/Not Resolved]
  - Flatulence [Unknown]
  - White blood cell count increased [Recovering/Resolving]
  - Rash papular [Unknown]
  - Weight decreased [Unknown]
  - Blood pressure increased [Unknown]
  - Anxiety [Not Recovered/Not Resolved]
  - Lymphocyte count increased [Unknown]
  - Contusion [Unknown]
  - Insomnia [Recovered/Resolved]
  - Haemorrhoids [Not Recovered/Not Resolved]
  - Blood sodium decreased [Unknown]
  - Decreased appetite [Recovering/Resolving]

NARRATIVE: CASE EVENT DATE: 201708
